FAERS Safety Report 4746063-5 (Version None)
Quarter: 2005Q3

REPORT INFORMATION
  Report Type: 
  Country: None (occurrence: None)
  Receive Date: 20050816
  Receipt Date: 20050804
  Transmission Date: 20060218
  Serious: Yes (Hospitalization)
  Sender: FDA-Public Use
  Company Number: FR-JNJFOC-20050801515

PATIENT
  Age: 54 Year
  Sex: Male
  Weight: 123 kg

DRUGS (11)
  1. HALDOL [Suspect]
     Dosage: DOSE= DROPS
     Route: 048
  2. DEPAKOTE [Suspect]
     Dosage: DOSE=TABLET
     Route: 048
  3. DEPAKOTE [Suspect]
     Indication: DRUG USE FOR UNKNOWN INDICATION
     Route: 048
  4. LOXAPAC [Suspect]
     Indication: DRUG USE FOR UNKNOWN INDICATION
     Route: 048
  5. SELOKEN [Concomitant]
     Dosage: FOR 15 YEARS
  6. NEXIUM [Concomitant]
     Dosage: FOR SEVERAL YEARS
  7. METFORMIN HCL [Concomitant]
     Dosage: FOR 3 YEARS
     Dates: start: 20030101
  8. MOVICOL [Concomitant]
  9. MOVICOL [Concomitant]
  10. MOVICOL [Concomitant]
  11. MOVICOL [Concomitant]

REACTIONS (1)
  - LEUKOCYTOCLASTIC VASCULITIS [None]
